FAERS Safety Report 15732154 (Version 1)
Quarter: 2018Q4

REPORT INFORMATION
  Report Type: Report from Study
  Country: DK (occurrence: DK)
  Receive Date: 20181217
  Receipt Date: 20181217
  Transmission Date: 20190205
  Serious: Yes (Death, Life-Threatening, Hospitalization)
  Sender: FDA-Public Use
  Company Number: DK-MYLANLABS-2018M1093886

PATIENT
  Age: 82 Year
  Sex: Female

DRUGS (2)
  1. ESCITALOPRAM [Suspect]
     Active Substance: ESCITALOPRAM OXALATE
     Indication: PRODUCT USED FOR UNKNOWN INDICATION
     Route: 065
  2. VERAPAMIL [Suspect]
     Active Substance: VERAPAMIL HYDROCHLORIDE
     Indication: PRODUCT USED FOR UNKNOWN INDICATION
     Dosage: FORMULATION: EXTENDED RELEASE
     Route: 048

REACTIONS (12)
  - Toxicity to various agents [Fatal]
  - Bradycardia [Fatal]
  - Hypercapnia [Unknown]
  - Completed suicide [Fatal]
  - Atrial fibrillation [Fatal]
  - Muscle spasms [Unknown]
  - Muscle twitching [Unknown]
  - Anuria [Unknown]
  - Intentional overdose [Fatal]
  - Cardiotoxicity [Fatal]
  - Bundle branch block left [Fatal]
  - Somnolence [Unknown]
